FAERS Safety Report 9714012 (Version 1)
Quarter: 2013Q4

REPORT INFORMATION
  Report Type: Spontaneous
  Country: US (occurrence: US)
  Receive Date: 20131126
  Receipt Date: 20131126
  Transmission Date: 20140711
  Serious: No
  Sender: FDA-Public Use
  Company Number: US-GILEAD-2008-0018519

PATIENT
  Age: 73 Year
  Sex: Female

DRUGS (18)
  1. LETAIRIS [Suspect]
     Indication: PULMONARY ARTERIAL HYPERTENSION
     Route: 048
     Dates: start: 20080918, end: 20080922
  2. COUMADIN [Concomitant]
  3. VITAMIN E [Concomitant]
  4. FLEXERIL [Concomitant]
  5. DIGOXIN [Concomitant]
  6. METFORMIN [Concomitant]
  7. LEVOTHYROXINE [Concomitant]
  8. JANUVIA [Concomitant]
  9. CHLORPROMAZINE [Concomitant]
  10. CITRACAL +D [Concomitant]
  11. DRY [Concomitant]
  12. CYTOMEL [Concomitant]
  13. RANITIDINE [Concomitant]
  14. PROBIOTIC [Concomitant]
  15. LUNETA [Concomitant]
  16. SILYMARIN [Concomitant]
  17. AMARYL [Concomitant]
  18. NADOLOL [Concomitant]

REACTIONS (1)
  - Dyspnoea [Recovered/Resolved]
